FAERS Safety Report 13985647 (Version 1)
Quarter: 2017Q3

REPORT INFORMATION
  Report Type: Spontaneous
  Country: US (occurrence: None)
  Receive Date: 20170919
  Receipt Date: 20170919
  Transmission Date: 20171128
  Serious: Yes (Hospitalization)
  Sender: FDA-Public Use
  Company Number: None

PATIENT
  Age: 49 Year
  Sex: Male

DRUGS (11)
  1. XELJANZ XR [Suspect]
     Active Substance: TOFACITINIB CITRATE
     Indication: RHEUMATOID ARTHRITIS
     Dosage: FOR KNEE REPLACEMENT
     Route: 048
     Dates: start: 20170510
  2. LEFLUNOMIDE. [Concomitant]
     Active Substance: LEFLUNOMIDE
  3. CELECOXIB. [Concomitant]
     Active Substance: CELECOXIB
  4. OXYCODONE [Concomitant]
     Active Substance: OXYCODONE
  5. HYDROMORPHON [Concomitant]
     Active Substance: HYDROMORPHONE
  6. LISINOPRIL. [Concomitant]
     Active Substance: LISINOPRIL
  7. CEPHALEXIN. [Concomitant]
     Active Substance: CEPHALEXIN
  8. SYMBICORT [Concomitant]
     Active Substance: BUDESONIDE\FORMOTEROL FUMARATE DIHYDRATE
  9. HYDROCO/APAP [Concomitant]
     Active Substance: ACETAMINOPHEN\HYDROCODONE
  10. ONDANSETRON [Concomitant]
     Active Substance: ONDANSETRON
  11. CIALIS [Concomitant]
     Active Substance: TADALAFIL

REACTIONS (2)
  - Knee arthroplasty [None]
  - Therapy cessation [None]
